FAERS Safety Report 8906975 (Version 1)
Quarter: 2012Q4

REPORT INFORMATION
  Report Type: 
  Country: US (occurrence: US)
  Receive Date: 20121114
  Receipt Date: 20121114
  Transmission Date: 20130627
  Serious: Yes (Hospitalization)
  Sender: FDA-Public Use
  Company Number: US-GLAXOSMITHKLINE-A0960461A

PATIENT
  Age: 44 Year
  Sex: Female
  Weight: 59.93 kg

DRUGS (8)
  1. BENLYSTA [Suspect]
     Indication: SYSTEMIC LUPUS ERYTHEMATOSUS
     Route: 042
     Dates: start: 20110712
  2. ARAVA [Concomitant]
     Dosage: 10MG Per day
  3. IMURAN [Concomitant]
     Dosage: 25MG Per day
  4. CELEXA [Concomitant]
     Dosage: 10MG Per day
  5. ASPIRIN [Concomitant]
     Dosage: 81MG Per day
  6. FOLIC ACID [Concomitant]
     Dosage: 400MCG Per day
  7. VITAMIN D [Concomitant]
     Dosage: 2500IU Per day
  8. SOLUMEDROL [Concomitant]

REACTIONS (23)
  - Pulmonary hypertension [Not Recovered/Not Resolved]
  - Tricuspid valve incompetence [Unknown]
  - Mitral valve incompetence [Unknown]
  - Left ventricular failure [Unknown]
  - Muscular weakness [Not Recovered/Not Resolved]
  - Chills [Recovered/Resolved]
  - Hypotension [Recovered/Resolved]
  - Insomnia [Recovered/Resolved]
  - Diarrhoea [Recovered/Resolved]
  - Dyspnoea [Not Recovered/Not Resolved]
  - Diastolic dysfunction [Unknown]
  - Chest discomfort [Unknown]
  - Nausea [Unknown]
  - Constipation [Unknown]
  - Pain in extremity [Unknown]
  - Hyperhidrosis [Unknown]
  - Cough [Unknown]
  - Headache [Unknown]
  - Infusion site pain [Unknown]
  - Myalgia [Unknown]
  - Chest pain [Unknown]
  - Dyspnoea exertional [Unknown]
  - Drug ineffective [Unknown]
